FAERS Safety Report 8590553-4 (Version None)
Quarter: 2012Q3

REPORT INFORMATION
  Report Type: 
  Country: None (occurrence: None)
  Receive Date: 20120813
  Receipt Date: 20120808
  Transmission Date: 20120928
  Serious: Yes (Death, Hospitalization)
  Sender: FDA-Public Use
  Company Number: US-TEVA-352987USA

PATIENT
  Age: 70 Year
  Sex: Male

DRUGS (2)
  1. TREANDA [Suspect]
     Indication: LYMPHOMA
     Route: 042
     Dates: start: 20120514, end: 20120515
  2. RITUXIMAB [Suspect]

REACTIONS (4)
  - HISTIOCYTOSIS HAEMATOPHAGIC [None]
  - BACTERAEMIA [None]
  - PANCYTOPENIA [None]
  - ASPERGILLOSIS [None]
